FAERS Safety Report 5083463-0 (Version None)
Quarter: 2006Q3

REPORT INFORMATION
  Report Type: 
  Country: None (occurrence: None)
  Receive Date: 20060720
  Receipt Date: 20050601
  Transmission Date: 20061208
  Serious: Yes (Other)
  Sender: FDA-Public Use
  Company Number: 2003185216US

PATIENT
  Age: 71 Year
  Sex: Male

DRUGS (10)
  1. CELEBREX [Suspect]
     Indication: ARTHRITIS
     Dosage: 200 MG
     Dates: start: 20020101, end: 20040101
  2. BEXTRA [Suspect]
     Indication: ILL-DEFINED DISORDER
  3. VIOXX [Suspect]
     Indication: ILL-DEFINED DISORDER
  4. CARDIZEM CD (DILTIAZEM HYDROCHLOROTHIAZIDE) [Concomitant]
  5. LIPITOR [Concomitant]
  6. TOPROL-XL [Concomitant]
  7. LEVAQUIN [Concomitant]
  8. ASPIRIN [Concomitant]
  9. VITAMINS (VITAMINS) [Concomitant]
  10. NITROGLYCERIN [Concomitant]

REACTIONS (3)
  - ABDOMINAL PAIN UPPER [None]
  - HAEMATURIA [None]
  - PAIN [None]
